FAERS Safety Report 5192104-3 (Version None)
Quarter: 2006Q4

REPORT INFORMATION
  Report Type: 
  Country: None (occurrence: None)
  Receive Date: 20061220
  Receipt Date: 20061218
  Transmission Date: 20070319
  Serious: Yes (Other)
  Sender: FDA-Public Use
  Company Number: 2006US002794

PATIENT
  Sex: Female

DRUGS (1)
  1. PROTOPIC [Suspect]
     Indication: DERMATITIS ATOPIC
     Dosage: BID, TOPICAL
     Route: 061
     Dates: start: 20060101

REACTIONS (3)
  - IMPETIGO [None]
  - MALIGNANT MELANOMA [None]
  - SQUAMOUS CELL CARCINOMA OF SKIN [None]
